FAERS Safety Report 5603348-8 (Version None)
Quarter: 2008Q1

REPORT INFORMATION
  Report Type: 
  Country: None (occurrence: None)
  Receive Date: 20080122
  Receipt Date: 20080107
  Transmission Date: 20080703
  Serious: Yes (Other)
  Sender: FDA-Public Use
  Company Number: GB-1164945

PATIENT
  Age: 71 Year
  Sex: Female

DRUGS (12)
  1. BSS [Suspect]
     Dosage: INTRAOCULAR
     Route: 031
     Dates: start: 20070501, end: 20070501
  2. CHLORAMPHENICOL [Suspect]
     Dosage: OPHTHALMIC
     Route: 047
     Dates: start: 20070501, end: 20070501
  3. EPINEPHRINE [Concomitant]
  4. BETAMETHASONE [Concomitant]
  5. CYCLOPENTOLATE HYDROCHLORIDE [Concomitant]
  6. HYALURONATE SODIUM (HYALURONATE SODIUM) [Concomitant]
  7. LIDOCAINE [Concomitant]
  8. NEOMYCIN [Concomitant]
  9. OCUFEN [Concomitant]
  10. PHENYLEPHRINE (PHENYLEPHRINE) [Concomitant]
  11. POVIDONE IODINE [Concomitant]
  12. VANCOMYCIN HYDROCHLORIDE [Concomitant]

REACTIONS (1)
  - TOXIC ANTERIOR SEGMENT SYNDROME [None]
